FAERS Safety Report 9837963 (Version 3)
Quarter: 2014Q1

REPORT INFORMATION
  Report Type: Spontaneous
  Country: US (occurrence: US)
  Receive Date: 20140123
  Receipt Date: 20140327
  Transmission Date: 20141002
  Serious: Yes (Other)
  Sender: FDA-Public Use
  Company Number: US-NOVOPROD-398011

PATIENT
  Age: 74 Year
  Sex: Male
  Weight: 90.7 kg

DRUGS (3)
  1. VICTOZA [Suspect]
     Indication: TYPE 2 DIABETES MELLITUS
     Dosage: 0.6 MG, QD
     Route: 058
     Dates: start: 20140109, end: 20140110
  2. VICTOZA [Suspect]
  3. VICTOZA [Suspect]

REACTIONS (1)
  - Pancreatitis [Not Recovered/Not Resolved]
